FAERS Safety Report 5739688-1 (Version None)
Quarter: 2008Q2

REPORT INFORMATION
  Report Type: 
  Country: None (occurrence: None)
  Receive Date: 20080513
  Receipt Date: 20080428
  Transmission Date: 20081010
  Serious: Yes (Hospitalization)
  Sender: FDA-Public Use
  Company Number: 02100-JPN-07-0654

PATIENT
  Age: 76 Year
  Sex: Female
  Weight: 49.6 kg

DRUGS (7)
  1. PLETAL [Suspect]
     Indication: CEREBRAL INFARCTION
     Dates: start: 20051008, end: 20070922
  2. PLETAL [Suspect]
     Indication: CEREBRAL INFARCTION
     Dates: start: 20070925, end: 20080326
  3. PLETAL [Suspect]
     Indication: CEREBRAL INFARCTION
     Dates: start: 20080413
  4. REMODELLIN (ALFACALCIDOL) [Concomitant]
  5. NIFEDIPINE [Concomitant]
  6. PRAVASTATIN [Concomitant]
  7. FAMOTIDINE [Concomitant]

REACTIONS (2)
  - APPENDICITIS [None]
  - LUNG NEOPLASM MALIGNANT [None]
